FAERS Safety Report 6079697-9 (Version None)
Quarter: 2009Q1

REPORT INFORMATION
  Report Type: 
  Country: None (occurrence: None)
  Receive Date: 20090217
  Receipt Date: 20090210
  Transmission Date: 20090719
  Serious: Yes (Death, Hospitalization)
  Sender: FDA-Public Use
  Company Number: JP-BRISTOL-MYERS SQUIBB COMPANY-14432991

PATIENT
  Age: 39 Year
  Sex: Female

DRUGS (14)
  1. TAXOL [Suspect]
     Indication: BREAST CANCER
     Dosage: DRUG WITHDRAWN DATE 02DEC2008
     Route: 042
     Dates: start: 20070928, end: 20081104
  2. AVASTIN [Suspect]
     Indication: BREAST CANCER
     Dosage: DRUG WITHDRAWN DATE 02DEC2008
     Route: 042
     Dates: start: 20070928, end: 20081104
  3. DEXART [Suspect]
     Indication: BREAST CANCER
     Route: 042
     Dates: start: 20070928
  4. DIPHENHYDRAMINE HCL [Concomitant]
     Dates: start: 20070928
  5. RANITIDINE HCL [Concomitant]
     Dates: start: 20070928
  6. GRANISETRON HCL [Concomitant]
     Dates: start: 20070928
  7. ASPIRIN [Concomitant]
     Dates: start: 20081002
  8. DIALUME [Concomitant]
     Dates: start: 20081002
  9. BETAMETHASONE [Concomitant]
     Dates: start: 20081122
  10. KETOPROFEN [Concomitant]
     Dates: start: 20081212
  11. MOMETASONE FUROATE [Concomitant]
     Dates: start: 20070928
  12. FUROSEMIDE [Concomitant]
     Indication: OEDEMA
     Dates: start: 20070928, end: 20081104
  13. LETROZOLE [Concomitant]
     Dates: start: 20081212
  14. GOSERELIN ACETATE [Concomitant]
     Dates: start: 20081212

REACTIONS (2)
  - MALAISE [None]
  - MYOCARDIAL ISCHAEMIA [None]
